FAERS Safety Report 11609179 (Version 2)
Quarter: 2015Q4

REPORT INFORMATION
  Report Type: Spontaneous
  Country: US (occurrence: None)
  Receive Date: 20151007
  Receipt Date: 20151020
  Transmission Date: 20160304
  Serious: Yes (Other)
  Sender: FDA-Public Use
  Company Number: US-MDT-ADR-2015-01921

PATIENT
  Age: 26 Year
  Sex: Male

DRUGS (2)
  1. LIORESAL [Suspect]
     Active Substance: BACLOFEN
     Indication: MUSCLE SPASTICITY
     Dosage: 32.37MCG/DAY
  2. BACLOFEN (ORAL) [Suspect]
     Active Substance: BACLOFEN

REACTIONS (1)
  - Medical device site infection [None]
